FAERS Safety Report 8941286 (Version 1)
Quarter: 2012Q4

REPORT INFORMATION
  Report Type: 
  Country: GB (occurrence: GB)
  Receive Date: 20121203
  Receipt Date: 20121203
  Transmission Date: 20130627
  Serious: Yes (Other)
  Sender: FDA-Public Use
  Company Number: GB-ELI_LILLY_AND_COMPANY-GB201211007143

PATIENT
  Age: 10 Year
  Sex: Female

DRUGS (2)
  1. STRATTERA [Suspect]
     Dosage: 25 mg, UNK
  2. MEDIKINET [Concomitant]

REACTIONS (1)
  - Breast mass [Unknown]
